FAERS Safety Report 22172348 (Version 2)
Quarter: 2023Q2

REPORT INFORMATION
  Report Type: Spontaneous
  Country: US (occurrence: US)
  Receive Date: 20230404
  Receipt Date: 20230420
  Transmission Date: 20230721
  Serious: Yes (Other)
  Sender: FDA-Public Use
  Company Number: US-PFIZER INC-PV202300058957

PATIENT
  Age: 75 Year
  Sex: Female

DRUGS (3)
  1. IBRANCE [Suspect]
     Active Substance: PALBOCICLIB
     Indication: Metastases to breast
     Dosage: 125 MG, DAILY (W/BREAKFAST)
     Route: 048
  2. IBRANCE [Suspect]
     Active Substance: PALBOCICLIB
     Indication: Breast cancer recurrent
     Dosage: 125 MG, CYCLIC (21 OUT OF 28 DAYS)
     Dates: start: 20230209
  3. ANASTROZOLE [Concomitant]
     Active Substance: ANASTROZOLE
     Dosage: 1 MG, DAILY

REACTIONS (15)
  - Rheumatoid arthritis [Unknown]
  - Alopecia [Unknown]
  - Headache [Unknown]
  - Hot flush [Unknown]
  - Fatigue [Unknown]
  - Diarrhoea [Unknown]
  - Myalgia [Unknown]
  - Arthralgia [Unknown]
  - Dizziness [Unknown]
  - Vertigo [Unknown]
  - Rash erythematous [Unknown]
  - Osteopenia [Unknown]
  - Hyperlipidaemia [Unknown]
  - Depression [Unknown]
  - Gastrooesophageal reflux disease [Unknown]
